FAERS Safety Report 6193857-8 (Version None)
Quarter: 2009Q2

REPORT INFORMATION
  Report Type: 
  Country: None (occurrence: None)
  Receive Date: 20090518
  Receipt Date: 20090506
  Transmission Date: 20091009
  Serious: Yes (Hospitalization)
  Sender: FDA-Public Use
  Company Number: DE-WYE-H09271809

PATIENT
  Age: 37 Year
  Sex: Female

DRUGS (6)
  1. PANTOZOL [Suspect]
     Indication: PROPHYLAXIS AGAINST GASTROINTESTINAL ULCER
     Route: 048
     Dates: start: 20080301
  2. PREDNISONE [Suspect]
     Indication: CROHN'S DISEASE
     Route: 048
     Dates: start: 19990101, end: 20090225
  3. PREDNISONE [Suspect]
     Route: 048
     Dates: start: 20090226, end: 20090304
  4. PREDNISONE [Suspect]
     Dosage: ^REDUCED 10 MG EVERY WEEK UNTIL 30 MG ONCE DAILY^
     Route: 048
     Dates: start: 20090305
  5. MESALAZINE [Suspect]
     Indication: CROHN'S DISEASE
     Route: 048
     Dates: start: 20090226
  6. HUMIRA [Suspect]
     Indication: CROHN'S DISEASE
     Route: 058
     Dates: start: 20090302, end: 20090302

REACTIONS (4)
  - DIZZINESS [None]
  - ORAL MUCOSAL ERUPTION [None]
  - RESPIRATORY TRACT INFECTION [None]
  - VAGINAL DISCHARGE [None]
